FAERS Safety Report 7772727-5 (Version None)
Quarter: 2011Q3

REPORT INFORMATION
  Report Type: 
  Country: None (occurrence: None)
  Receive Date: 20110922
  Receipt Date: 20110211
  Transmission Date: 20111222
  Serious: No
  Sender: FDA-Public Use
  Company Number: US-ASTRAZENECA-2010SE59989

PATIENT
  Age: 77 Year
  Sex: Female
  Weight: 98.4 kg

DRUGS (1)
  1. SEROQUEL XR [Suspect]
     Indication: SLEEP DISORDER
     Route: 048
     Dates: start: 20100101, end: 20110105

REACTIONS (5)
  - INCREASED APPETITE [None]
  - SLEEP DISORDER [None]
  - PSYCHOTIC DISORDER [None]
  - WEIGHT INCREASED [None]
  - TREMOR [None]
